FAERS Safety Report 7892978-9 (Version None)
Quarter: 2011Q4

REPORT INFORMATION
  Report Type: 
  Country: None (occurrence: None)
  Receive Date: 20111104
  Receipt Date: 20111025
  Transmission Date: 20120403
  Serious: Yes (Hospitalization, Other)
  Sender: FDA-Public Use
  Company Number: JP-BRISTOL-MYERS SQUIBB COMPANY-16210783

PATIENT
  Age: 70 Year
  Sex: Male

DRUGS (5)
  1. ASPIRIN [Suspect]
  2. INSULIN [Concomitant]
     Route: 058
     Dates: start: 20110929
  3. PLAVIX [Suspect]
  4. WARFARIN SODIUM [Suspect]
  5. METFORMIN HCL [Suspect]
     Indication: TYPE 2 DIABETES MELLITUS
     Route: 048

REACTIONS (3)
  - HAEMOGLOBIN DECREASED [None]
  - FACTOR XIII DEFICIENCY [None]
  - HAEMATOMA [None]
